FAERS Safety Report 12146672 (Version 2)
Quarter: 2016Q1

REPORT INFORMATION
  Report Type: Spontaneous
  Country: US (occurrence: US)
  Receive Date: 20160304
  Receipt Date: 20160331
  Transmission Date: 20160526
  Serious: No
  Sender: FDA-Public Use
  Company Number: US-GLAXOSMITHKLINE-US2016029433

PATIENT
  Age: 67 Year
  Sex: Female

DRUGS (8)
  1. ARNUITY ELLIPTA [Suspect]
     Active Substance: FLUTICASONE FUROATE
     Indication: ASTHMA
     Dosage: 1 PUFF(S), UNK
     Route: 055
     Dates: start: 201601
  2. SINGULAIR [Concomitant]
     Active Substance: MONTELUKAST SODIUM
  3. NASONEX [Concomitant]
     Active Substance: MOMETASONE FUROATE
  4. ARNUITY ELLIPTA [Suspect]
     Active Substance: FLUTICASONE FUROATE
     Indication: CHRONIC OBSTRUCTIVE PULMONARY DISEASE
  5. METFORMIN [Concomitant]
     Active Substance: METFORMIN HYDROCHLORIDE
  6. LODIPINE [Concomitant]
  7. LYRICA [Concomitant]
     Active Substance: PREGABALIN
  8. ANORO ELLIPTA [Concomitant]
     Active Substance: UMECLIDINIUM BROMIDE\VILANTEROL TRIFENATATE
     Dosage: UNK
     Dates: start: 2014

REACTIONS (6)
  - Wheezing [Not Recovered/Not Resolved]
  - Drug ineffective [Unknown]
  - Product physical consistency issue [Unknown]
  - Product quality issue [Unknown]
  - Bronchospasm [Not Recovered/Not Resolved]
  - Condition aggravated [Not Recovered/Not Resolved]

NARRATIVE: CASE EVENT DATE: 201602
